FAERS Safety Report 10037845 (Version 1)
Quarter: 2014Q1

REPORT INFORMATION
  Report Type: Spontaneous
  Country: US (occurrence: None)
  Receive Date: 20140325
  Receipt Date: 20140325
  Transmission Date: 20141002
  Serious: Yes (Hospitalization)
  Sender: FDA-Public Use
  Company Number: None

PATIENT
  Age: 63 Year
  Sex: Male
  Weight: 86 kg

DRUGS (2)
  1. SOFOSBUVIR [Suspect]
     Indication: HEPATITIS C
     Dates: start: 20140118
  2. RIBAVIRIN [Suspect]
     Indication: HEPATITIS C
     Dates: start: 20140118

REACTIONS (3)
  - Nausea [None]
  - Vomiting [None]
  - Confusional state [None]
